FAERS Safety Report 13264194 (Version 2)
Quarter: 2018Q1

REPORT INFORMATION
  Report Type: Spontaneous
  Country: US (occurrence: US)
  Receive Date: 20170223
  Receipt Date: 20180313
  Transmission Date: 20180508
  Serious: No
  Sender: FDA-Public Use
  Company Number: US-PFIZER INC-2017075288

PATIENT
  Age: 72 Year
  Sex: Female
  Weight: 106.5 kg

DRUGS (3)
  1. BOTOX [Concomitant]
     Active Substance: ONABOTULINUMTOXINA
     Indication: BOTULINUM TOXIN INJECTION
     Dosage: UNK
     Dates: start: 2014
  2. TOVIAZ [Suspect]
     Active Substance: FESOTERODINE FUMARATE
     Indication: INCONTINENCE
     Dosage: UNK
  3. TOVIAZ [Suspect]
     Active Substance: FESOTERODINE FUMARATE
     Dosage: 4 MG, 1X/DAY (EVERY NIGHT, ONE PILL AT NIGHT)

REACTIONS (6)
  - Abdominal discomfort [Unknown]
  - Withdrawal syndrome [Unknown]
  - Nausea [Unknown]
  - Sleep disorder [Not Recovered/Not Resolved]
  - Intentional product misuse [Unknown]
  - Pollakiuria [Unknown]
